FAERS Safety Report 9454677 (Version 1)
Quarter: 2013Q3

REPORT INFORMATION
  Report Type: Spontaneous
  Country: US (occurrence: None)
  Receive Date: 20130808
  Receipt Date: 20130808
  Transmission Date: 20140515
  Serious: Yes (Hospitalization)
  Sender: FDA-Public Use
  Company Number: PR-AE13-000841

PATIENT
  Sex: Male

DRUGS (1)
  1. GOODYS [Suspect]
     Indication: ANALGESIC THERAPY
     Route: 048

REACTIONS (4)
  - Cerebrovascular accident [None]
  - Grand mal convulsion [None]
  - Overdose [None]
  - Angiopathy [None]
